FAERS Safety Report 24764248 (Version 1)
Quarter: 2024Q4

REPORT INFORMATION
  Report Type: Spontaneous
  Country: US (occurrence: US)
  Receive Date: 20241223
  Receipt Date: 20241223
  Transmission Date: 20250115
  Serious: No
  Sender: ABBVIE
  Company Number: US-ABBVIE-6056510

PATIENT
  Age: 35 Year

DRUGS (4)
  1. KYBELLA [Suspect]
     Active Substance: DEOXYCHOLIC ACID
     Indication: Fat tissue increased
     Dosage: TIME INTERVAL: AS NECESSARY: FIRST TREATMENT
     Route: 058
     Dates: start: 2024, end: 2024
  2. KYBELLA [Suspect]
     Active Substance: DEOXYCHOLIC ACID
     Indication: Fat tissue increased
     Dosage: TIME INTERVAL: AS NECESSARY: SECOND TREATMENT
     Route: 058
     Dates: start: 2024, end: 2024
  3. KYBELLA [Suspect]
     Active Substance: DEOXYCHOLIC ACID
     Indication: Fat tissue increased
     Dosage: TIME INTERVAL: AS NECESSARY: THIRD TREATMENT
     Route: 058
     Dates: start: 2024, end: 2024
  4. KYBELLA [Suspect]
     Active Substance: DEOXYCHOLIC ACID
     Indication: Fat tissue increased
     Dosage: TIME INTERVAL: AS NECESSARY: FOURTH TREATMENT
     Route: 058
     Dates: start: 2024, end: 2024

REACTIONS (2)
  - Off label use [Unknown]
  - Weight increased [Unknown]

NARRATIVE: CASE EVENT DATE: 20240101
